FAERS Safety Report 9255466 (Version 1)
Quarter: 2013Q2

REPORT INFORMATION
  Report Type: Spontaneous
  Country: US (occurrence: None)
  Receive Date: 20130423
  Receipt Date: 20130423
  Transmission Date: 20140414
  Serious: Yes (Other)
  Sender: FDA-Public Use
  Company Number: None

PATIENT
  Age: 16 Year
  Sex: Female

DRUGS (1)
  1. PROTONIX [Suspect]
     Dosage: 1  QD  PO?
     Route: 048
     Dates: start: 20130215, end: 20130316

REACTIONS (1)
  - Headache [None]
